FAERS Safety Report 5218463-0 (Version None)
Quarter: 2007Q1

REPORT INFORMATION
  Report Type: 
  Country: None (occurrence: None)
  Receive Date: 20061201
  Receipt Date: 20060413
  Transmission Date: 20070707
  Serious: Yes (Other)
  Sender: FDA-Public Use
  Company Number: SUS1-2006-00124

PATIENT
  Age: 10 Year
  Sex: Male
  Weight: 27.7 kg

DRUGS (2)
  1. ADDERALL 10 [Suspect]
     Indication: ATTENTION DEFICIT/HYPERACTIVITY DISORDER
     Dosage: 30 MG DAILY, 10 MG UP TO 30 MG DAILY
     Dates: start: 20020901, end: 20050201
  2. ADDERALL 10 [Suspect]
     Indication: ATTENTION DEFICIT/HYPERACTIVITY DISORDER
     Dosage: 30 MG DAILY, 10 MG UP TO 30 MG DAILY
     Dates: start: 20050501

REACTIONS (3)
  - ACUTE PSYCHOSIS [None]
  - ANOREXIA [None]
  - INSOMNIA [None]
